FAERS Safety Report 8808881 (Version 1)
Quarter: 2012Q4

REPORT INFORMATION
  Report Type: 
  Country: PT (occurrence: PT)
  Receive Date: 20120926
  Receipt Date: 20120926
  Transmission Date: 20130627
  Serious: Yes (Hospitalization)
  Sender: FDA-Public Use
  Company Number: PT-BAYER-2012-098573

PATIENT
  Age: 65 Year
  Sex: Male

DRUGS (5)
  1. CIPROFLOXACIN [Suspect]
     Indication: OTITIS EXTERNA
     Route: 048
  2. CEPHALEXIN [Suspect]
     Indication: OTITIS EXTERNA
     Route: 048
  3. POLYMYXIN B SULFATE [Suspect]
     Indication: OTITIS EXTERNA
     Route: 061
  4. NEOMYCIN SULFATE [Suspect]
     Indication: OTITIS EXTERNA
     Route: 061
  5. HYDROCORTISONE [Suspect]
     Indication: OTITIS EXTERNA
     Route: 061

REACTIONS (2)
  - Otitis externa [None]
  - Dermatitis contact [None]
